FAERS Safety Report 22944970 (Version 2)
Quarter: 2023Q4

REPORT INFORMATION
  Report Type: Spontaneous
  Country: US (occurrence: US)
  Receive Date: 20230914
  Receipt Date: 20231103
  Transmission Date: 20240110
  Serious: No
  Sender: FDA-Public Use
  Company Number: US-PFIZER INC-202300295597

PATIENT
  Age: 85 Year
  Sex: Female
  Weight: 66.68 kg

DRUGS (2)
  1. IBRANCE [Suspect]
     Active Substance: PALBOCICLIB
     Indication: Bone cancer
     Dosage: 100 MG
     Dates: start: 20230222
  2. IBRANCE [Suspect]
     Active Substance: PALBOCICLIB
     Dosage: 100 MG, CYCLIC (21 DAYS THEN OFF 7 DAYS THEN STARTS BACK UP)
     Route: 048
     Dates: end: 20230829

REACTIONS (3)
  - Flatulence [Unknown]
  - Abdominal discomfort [Unknown]
  - Off label use [Unknown]
